FAERS Safety Report 5475966-1 (Version None)
Quarter: 2007Q4

REPORT INFORMATION
  Report Type: 
  Country: None (occurrence: None)
  Receive Date: 20071003
  Receipt Date: 20070918
  Transmission Date: 20080405
  Serious: Yes (Hospitalization, Other)
  Sender: FDA-Public Use
  Company Number: JP-ELI_LILLY_AND_COMPANY-JP200708006865

PATIENT
  Age: 81 Year
  Sex: Female
  Weight: 58 kg

DRUGS (5)
  1. LIPITOR [Concomitant]
     Dosage: 5 MG, DAILY (1/D)
     Route: 048
     Dates: start: 20030924
  2. KAMAG G [Concomitant]
     Dosage: 0.67 G, 3/D
     Route: 048
     Dates: start: 20030930
  3. ALFAROL [Concomitant]
     Route: 048
     Dates: start: 20060208
  4. FAMOTIDINE [Concomitant]
     Dosage: 10 MG, 2/D
     Route: 048
     Dates: start: 20070404
  5. EVISTA [Suspect]
     Indication: OSTEOPOROSIS
     Dosage: 60 MG, DAILY (1/D)
     Route: 048
     Dates: start: 20070404, end: 20070418

REACTIONS (2)
  - DEEP VEIN THROMBOSIS [None]
  - PULMONARY INFARCTION [None]
